FAERS Safety Report 7983766-3 (Version None)
Quarter: 2011Q4

REPORT INFORMATION
  Report Type: 
  Country: None (occurrence: None)
  Receive Date: 20111215
  Receipt Date: 20111207
  Transmission Date: 20120403
  Serious: Yes (Hospitalization)
  Sender: FDA-Public Use
  Company Number: US-US-EMD SERONO, INC.-7061725

PATIENT
  Sex: Female

DRUGS (7)
  1. WARFARIN SODIUM [Concomitant]
     Indication: PULMONARY EMBOLISM
  2. WARFARIN SODIUM [Concomitant]
     Indication: DEEP VEIN THROMBOSIS
  3. LOVENOX [Concomitant]
     Indication: PULMONARY EMBOLISM
  4. LASIX [Concomitant]
     Indication: OEDEMA PERIPHERAL
  5. LOVENOX [Concomitant]
     Indication: DEEP VEIN THROMBOSIS
  6. REBIF [Suspect]
     Indication: MULTIPLE SCLEROSIS
     Route: 058
     Dates: start: 20110113
  7. ACETAMINOPHEN [Concomitant]
     Indication: PREMEDICATION

REACTIONS (3)
  - PERIPHERAL EMBOLISM [None]
  - INTERNATIONAL NORMALISED RATIO DECREASED [None]
  - PULMONARY EMBOLISM [None]
